FAERS Safety Report 6869059-6 (Version None)
Quarter: 2010Q3

REPORT INFORMATION
  Report Type: 
  Country: None (occurrence: None)
  Receive Date: 20100722
  Receipt Date: 20100722
  Transmission Date: 20110219
  Serious: Yes (Hospitalization)
  Sender: FDA-Public Use
  Company Number: None

PATIENT
  Sex: Female
  Weight: 85 kg

DRUGS (2)
  1. CELEBREX [Suspect]
     Indication: RECTAL CANCER
     Dosage: 400 MG D2-21 EACH CYCLE, BID P.O.
     Route: 048
     Dates: start: 20100427
  2. EPO906 IND# 69334 [Suspect]
     Indication: RECTAL CANCER
     Dosage: 11MG/M2 D1 EACH CYCLE IV
     Route: 042
     Dates: start: 20100504

REACTIONS (13)
  - BLOOD ELECTROLYTES ABNORMAL [None]
  - BLOOD PRESSURE DECREASED [None]
  - DIARRHOEA [None]
  - DYSPNOEA [None]
  - HEART RATE INCREASED [None]
  - HYPERKALAEMIA [None]
  - HYPONATRAEMIA [None]
  - HYPOVOLAEMIA [None]
  - NAUSEA [None]
  - REFUSAL OF TREATMENT BY PATIENT [None]
  - RENAL FAILURE ACUTE [None]
  - SEPSIS [None]
  - VOMITING [None]
